FAERS Safety Report 16591564 (Version 3)
Quarter: 2019Q3

REPORT INFORMATION
  Report Type: Spontaneous
  Country: JP (occurrence: JP)
  Receive Date: 20190718
  Receipt Date: 20190724
  Transmission Date: 20191004
  Serious: Yes (Hospitalization, Other)
  Sender: FDA-Public Use
  Company Number: JP-BRISTOL-MYERS SQUIBB COMPANY-BMS-2019-018645

PATIENT
  Age: 69 Year
  Sex: Male
  Weight: 68.4 kg

DRUGS (7)
  1. OPDIVO [Suspect]
     Active Substance: NIVOLUMAB
     Indication: MALIGNANT MELANOMA
     Dosage: 80 MG, UNK
     Route: 041
     Dates: start: 20181217, end: 20190125
  2. YERVOY [Suspect]
     Active Substance: IPILIMUMAB
     Indication: MALIGNANT MELANOMA
     Dosage: 211 MILLIGRAM
     Route: 041
     Dates: start: 20181217, end: 20190125
  3. PREDNISOLONE. [Suspect]
     Active Substance: PREDNISOLONE
     Indication: PRODUCT USED FOR UNKNOWN INDICATION
     Dosage: 10 MILLIGRAM, QD
     Route: 065
     Dates: start: 20190416
  4. PREDNISOLONE. [Suspect]
     Active Substance: PREDNISOLONE
     Indication: HEPATIC FUNCTION ABNORMAL
     Dosage: 1 MILLIGRAM/KILOGRAM, QD
     Route: 065
     Dates: start: 20190214
  5. PREDNISOLONE. [Suspect]
     Active Substance: PREDNISOLONE
     Indication: PRODUCT USED FOR UNKNOWN INDICATION
     Dosage: UNK
     Route: 065
     Dates: start: 20190320
  6. DENOSINE [GANCICLOVIR] [Suspect]
     Active Substance: GANCICLOVIR
     Indication: CYTOMEGALOVIRUS INFECTION
     Dosage: UNK
     Route: 065
     Dates: start: 20190301, end: 20190329
  7. LASIX [Suspect]
     Active Substance: FUROSEMIDE
     Indication: HEPATIC FUNCTION ABNORMAL
     Dosage: 60 MILLIGRAM, QD
     Route: 048

REACTIONS (22)
  - Hyponatraemia [Unknown]
  - Liver disorder [Unknown]
  - Peritonitis bacterial [Recovering/Resolving]
  - Hypothyroidism [Unknown]
  - Jugular vein thrombosis [Unknown]
  - Urinary meatitis [Unknown]
  - Haemorrhoids [Recovering/Resolving]
  - Platelet count decreased [Recovering/Resolving]
  - Hyperglycaemia [Unknown]
  - Tinea pedis [Unknown]
  - Lung disorder [Recovering/Resolving]
  - Bacterial infection [Unknown]
  - Impaired healing [Unknown]
  - Tumour lysis syndrome [Recovered/Resolved]
  - Hepatic failure [Not Recovered/Not Resolved]
  - Hepatic encephalopathy [Unknown]
  - Cytomegalovirus infection [Recovering/Resolving]
  - Haemophagocytic lymphohistiocytosis [Unknown]
  - Musculoskeletal pain [Recovering/Resolving]
  - Blood beta-D-glucan increased [Recovering/Resolving]
  - Dyschezia [Recovering/Resolving]
  - Skin ulcer [Unknown]

NARRATIVE: CASE EVENT DATE: 20190208
